FAERS Safety Report 19165651 (Version 1)
Quarter: 2021Q2

REPORT INFORMATION
  Report Type: Spontaneous
  Country: US (occurrence: US)
  Receive Date: 20210421
  Receipt Date: 20210421
  Transmission Date: 20210717
  Serious: No
  Sender: FDA-Public Use
  Company Number: US-ZOGENIX INTERNATIONAL LIMITED, A WHOLLY OWNED SUBSIDIARY OF ZOGENIX, INC.-2021ZX000142

PATIENT
  Age: 2 Year
  Sex: Male

DRUGS (2)
  1. FINTEPLA [Suspect]
     Active Substance: FENFLURAMINE
     Indication: SEVERE MYOCLONIC EPILEPSY OF INFANCY
     Route: 048
  2. LEUCOVORIN. [Concomitant]
     Active Substance: LEUCOVORIN
     Indication: SEIZURE
     Dosage: PLANNED DRUG
     Route: 065

REACTIONS (5)
  - Hypotonia [Unknown]
  - Fine motor skill dysfunction [Unknown]
  - Drug ineffective [Unknown]
  - Seizure [Unknown]
  - Balance disorder [Unknown]
